FAERS Safety Report 12262537 (Version 1)
Quarter: 2016Q2

REPORT INFORMATION
  Report Type: Spontaneous
  Country: None (occurrence: None)
  Receive Date: 20160412
  Receipt Date: 20160412
  Transmission Date: 20160815
  Serious: No
  Sender: FDA-Public Use
  Company Number: None

PATIENT
  Age: 53 Year
  Sex: Female
  Weight: 64.41 kg

DRUGS (7)
  1. SYNTHROID [Concomitant]
     Active Substance: LEVOTHYROXINE SODIUM
  2. KIRKLAND VIT D3 [Concomitant]
  3. EFFEXOR XR [Suspect]
     Active Substance: VENLAFAXINE HYDROCHLORIDE
     Indication: ANXIETY
     Dosage: 1 CAPSULE(S) IN THE MORNING TAKEN BY MOUTH
     Route: 048
  4. NATURE^S WAY B-50 COMPLEX [Concomitant]
  5. SWANSON EFAS [Concomitant]
  6. NATURE^S WAY EFA BLEND FOR CHILDREN [Concomitant]
  7. DOCTORS BEST CHELATED MAGNESIUM [Concomitant]

REACTIONS (7)
  - Disturbance in attention [None]
  - Fatigue [None]
  - Thinking abnormal [None]
  - Product substitution issue [None]
  - Product quality issue [None]
  - Headache [None]
  - Hypoaesthesia [None]

NARRATIVE: CASE EVENT DATE: 20160401
